FAERS Safety Report 7974761-9 (Version None)
Quarter: 2011Q4

REPORT INFORMATION
  Report Type: 
  Country: None (occurrence: None)
  Receive Date: 20111213
  Receipt Date: 20111208
  Transmission Date: 20120403
  Serious: Yes (Death)
  Sender: FDA-Public Use
  Company Number: JP-ALLERGAN-1115426US

PATIENT
  Age: 5 Year
  Sex: Male

DRUGS (11)
  1. BOTOX [Suspect]
     Indication: MUSCLE TIGHTNESS
     Dosage: 15 UNITS, SINGLE
     Route: 030
     Dates: start: 20111005, end: 20111005
  2. TRICLORYL [Concomitant]
     Indication: MUSCLE TIGHTNESS
     Dosage: 8 ML, UNK
     Route: 048
     Dates: start: 20110101
  3. LEUPROLIDE ACETATE [Concomitant]
     Indication: CONSTIPATION
     Dosage: 300 A?G, Q MONTH
     Route: 058
     Dates: start: 20110101
  4. LAMICTAL [Concomitant]
     Indication: EPILEPSY
     Dosage: UNK
     Route: 048
     Dates: start: 20090501
  5. MAGNESIUM OXIDE [Concomitant]
     Indication: CONSTIPATION
     Dosage: 0.2 G, BID
     Route: 048
     Dates: start: 20110701
  6. PHENOBARBITAL TAB [Concomitant]
     Indication: EPILEPSY
     Dosage: 35 MG, BID
     Route: 048
     Dates: start: 20101101
  7. L-CARTIN [Concomitant]
     Indication: CARNITINE DEFICIENCY
     Dosage: 100 MG, QD
     Route: 048
     Dates: start: 20110601
  8. MYONAL [Suspect]
     Indication: MUSCLE TIGHTNESS
     Dosage: 10 MG, TID
     Route: 048
     Dates: start: 20100701
  9. TIZANIDINE HCL [Concomitant]
     Indication: MUSCLE TIGHTNESS
     Dosage: 0.66 MG, TID
     Route: 048
     Dates: start: 20110701
  10. DIAPP [Concomitant]
     Indication: MUSCLE TIGHTNESS
     Dosage: 4 MG, UNK
     Route: 054
     Dates: start: 20110101
  11. FAMOTIDINE [Concomitant]
     Indication: GASTROOESOPHAGEAL REFLUX DISEASE
     Dosage: 2 MG, BID
     Route: 048
     Dates: start: 20110701

REACTIONS (4)
  - CARDIO-RESPIRATORY ARREST [None]
  - HYPERTONIA [None]
  - RESPIRATORY FAILURE [None]
  - OXYGEN SATURATION DECREASED [None]
